FAERS Safety Report 10082403 (Version 1)
Quarter: 2014Q2

REPORT INFORMATION
  Report Type: Spontaneous
  Country: US (occurrence: None)
  Receive Date: 20140415
  Receipt Date: 20140415
  Transmission Date: 20141212
  Serious: Yes (Other)
  Sender: FDA-Public Use
  Company Number: None

PATIENT
  Age: 65 Year
  Sex: Male
  Weight: 70.31 kg

DRUGS (2)
  1. BUDESONIDE [Suspect]
     Indication: COLITIS MICROSCOPIC
     Dosage: 3MG?2QD?2 ONCE DAILY ?PO
     Route: 048
     Dates: start: 20140301, end: 20140412
  2. LISINOPRIL [Concomitant]

REACTIONS (2)
  - Asthenia [None]
  - Somnolence [None]
